FAERS Safety Report 11382881 (Version 1)
Quarter: 2015Q3

REPORT INFORMATION
  Report Type: Spontaneous
  Country: US (occurrence: US)
  Receive Date: 20150814
  Receipt Date: 20150814
  Transmission Date: 20151125
  Serious: Yes (Death)
  Sender: FDA-Public Use
  Company Number: US-JNJFOC-20150808682

PATIENT
  Sex: Male
  Weight: 97.98 kg

DRUGS (3)
  1. REMICADE [Suspect]
     Active Substance: INFLIXIMAB
     Indication: PSORIATIC ARTHROPATHY
     Route: 042
     Dates: start: 200511
  2. PIROXICAM. [Concomitant]
     Active Substance: PIROXICAM
     Dosage: EVERY OTHER DAY
     Route: 065
  3. METHOTREXATE [Concomitant]
     Active Substance: METHOTREXATE
     Indication: PSORIATIC ARTHROPATHY
     Route: 065
     Dates: start: 199210

REACTIONS (3)
  - Back pain [Unknown]
  - Nocardiosis [Fatal]
  - Drug ineffective [Unknown]
